FAERS Safety Report 14275488 (Version 1)
Quarter: 2017Q4

REPORT INFORMATION
  Report Type: Spontaneous
  Country: DE (occurrence: DE)
  Receive Date: 20171211
  Receipt Date: 20171211
  Transmission Date: 20180321
  Serious: Yes (Other)
  Sender: FDA-Public Use
  Company Number: DE-OTSUKA-DJ201407747

PATIENT
  Age: 32 Year
  Sex: Female
  Weight: 81 kg

DRUGS (3)
  1. ABILIFY [Suspect]
     Active Substance: ARIPIPRAZOLE
     Indication: SCHIZOAFFECTIVE DISORDER
     Dosage: 15 MG, QD
     Route: 048
     Dates: start: 20140218, end: 20141123
  2. FOLIC ACID. [Concomitant]
     Active Substance: FOLIC ACID
     Indication: PROPHYLAXIS OF NEURAL TUBE DEFECT
     Dosage: UNK
     Route: 048
  3. ABILIFY [Suspect]
     Active Substance: ARIPIPRAZOLE
     Indication: PSYCHOTIC DISORDER

REACTIONS (6)
  - Maternal exposure during pregnancy [Recovered/Resolved]
  - Amniorrhexis [Unknown]
  - Psychotic disorder [Unknown]
  - Gestational diabetes [Unknown]
  - Live birth [Unknown]
  - Off label use [Unknown]

NARRATIVE: CASE EVENT DATE: 20141123
